FAERS Safety Report 8974643 (Version 1)
Quarter: 2012Q4

REPORT INFORMATION
  Report Type: 
  Country: US (occurrence: US)
  Receive Date: 20121219
  Receipt Date: 20121219
  Transmission Date: 20130627
  Serious: No
  Sender: FDA-Public Use
  Company Number: US-AMGEN-USASP2012056756

PATIENT
  Age: 60 Year
  Sex: Female

DRUGS (11)
  1. PROLIA [Suspect]
     Indication: OSTEOPOROSIS POSTMENOPAUSAL
     Dosage: 60 mg, q6mo
     Dates: start: 20120301
  2. FENOFIBRATE [Concomitant]
  3. AMBIEN [Concomitant]
  4. CALCIUM [Concomitant]
     Dosage: UNK
  5. VITAMIN D [Concomitant]
     Dosage: UNK
  6. KLONOPIN [Concomitant]
  7. LIPITOR [Concomitant]
     Indication: BLOOD CHOLESTEROL INCREASED
  8. HYDROCODONE [Concomitant]
     Indication: MUSCULOSKELETAL DISCOMFORT
     Dosage: UNK UNK, q6h
  9. HYDROCODONE [Concomitant]
     Indication: MUSCULOSKELETAL PAIN
  10. CORTISONE [Concomitant]
     Indication: ARTHRALGIA
  11. CORTISONE [Concomitant]
     Indication: MUSCULOSKELETAL PAIN

REACTIONS (4)
  - Tinnitus [Not Recovered/Not Resolved]
  - Blood cholesterol increased [Unknown]
  - Arthralgia [Unknown]
  - Musculoskeletal pain [Unknown]
